FAERS Safety Report 25307162 (Version 3)
Quarter: 2025Q2

REPORT INFORMATION
  Report Type: Report from Study
  Country: BG (occurrence: BG)
  Receive Date: 20250513
  Receipt Date: 20250528
  Transmission Date: 20250717
  Serious: Yes (Death, Other)
  Sender: UCB
  Company Number: BG-UCBSA-2025027712

PATIENT
  Age: 77 Year
  Sex: Male

DRUGS (1)
  1. BIMZELX [Suspect]
     Active Substance: BIMEKIZUMAB-BKZX
     Indication: Psoriasis
     Dosage: UNK UNK, EV 8 WEEKS
     Route: 058

REACTIONS (2)
  - Pulmonary embolism [Fatal]
  - Cerebrovascular accident [Unknown]

NARRATIVE: CASE EVENT DATE: 20250506
